FAERS Safety Report 8274475-4 (Version None)
Quarter: 2012Q2

REPORT INFORMATION
  Report Type: 
  Country: None (occurrence: None)
  Receive Date: 20120411
  Receipt Date: 20120328
  Transmission Date: 20120825
  Serious: Yes (Hospitalization)
  Sender: FDA-Public Use
  Company Number: US-ROCHE-1055606

PATIENT
  Age: 54 Year
  Sex: Female
  Weight: 72.9 kg

DRUGS (4)
  1. PACLITAXEL [Suspect]
     Dosage: ON DAY 8
     Route: 042
  2. AVASTIN [Suspect]
     Indication: FALLOPIAN TUBE CANCER
     Dosage: OVER 30-90 MIN ON DAY 1, BEGINNING WITH CYCLE 2
     Route: 042
  3. PACLITAXEL [Suspect]
     Indication: FALLOPIAN TUBE CANCER
     Dosage: OVER 3 HRS ON DAY 1
     Route: 042
     Dates: start: 20111128
  4. CISPLATIN [Suspect]
     Indication: FALLOPIAN TUBE CANCER
     Dosage: ON DAY 2
     Route: 033
     Dates: start: 20111128

REACTIONS (1)
  - BURSITIS [None]
